FAERS Safety Report 10538141 (Version 1)
Quarter: 2014Q4

REPORT INFORMATION
  Report Type: Spontaneous
  Country: SE (occurrence: SE)
  Receive Date: 20141023
  Receipt Date: 20141023
  Transmission Date: 20150529
  Serious: Yes (Life-Threatening)
  Sender: FDA-Public Use
  Company Number: SE-PFIZER INC-2014290099

PATIENT
  Age: 72 Year
  Sex: Female

DRUGS (14)
  1. OMEPRAZOLE. [Concomitant]
     Active Substance: OMEPRAZOLE
  2. SALURES [Concomitant]
     Active Substance: BENDROFLUMETHIAZIDE
  3. RAMIPRIL. [Concomitant]
     Active Substance: RAMIPRIL
  4. PRIMPERAN [Concomitant]
     Active Substance: METOCLOPRAMIDE HYDROCHLORIDE
  5. ALPRAZOLAM. [Concomitant]
     Active Substance: ALPRAZOLAM
  6. TROMBYL [Concomitant]
     Active Substance: ASPIRIN
  7. DOLCONTIN [Concomitant]
     Active Substance: MORPHINE
  8. PANODIL [Concomitant]
     Active Substance: ACETAMINOPHEN
  9. SIMVASTATIN. [Concomitant]
     Active Substance: SIMVASTATIN
  10. MORFIN [Concomitant]
     Active Substance: MORPHINE SULFATE
  11. STESOLID [Concomitant]
     Active Substance: DIAZEPAM
  12. CITALOPRAM [Concomitant]
     Active Substance: CITALOPRAM HYDROBROMIDE
  13. OXASCAND [Concomitant]
     Active Substance: OXAZEPAM
  14. LYRICA [Suspect]
     Active Substance: PREGABALIN
     Dosage: 150 MG, 3X/DAY

REACTIONS (5)
  - Confusional state [Not Recovered/Not Resolved]
  - Suicidal behaviour [Unknown]
  - Overdose [Unknown]
  - Aggression [Not Recovered/Not Resolved]
  - Depressed level of consciousness [Not Recovered/Not Resolved]

NARRATIVE: CASE EVENT DATE: 20141008
